FAERS Safety Report 21436274 (Version 2)
Quarter: 2022Q4

REPORT INFORMATION
  Report Type: Other
  Country: DE (occurrence: None)
  Receive Date: 20221010
  Receipt Date: 20221124
  Transmission Date: 20230112
  Serious: Yes (Hospitalization)
  Sender: FDA-Public Use
  Company Number: DE-ROCHE-3193069

PATIENT
  Sex: Female

DRUGS (8)
  1. TOCILIZUMAB [Suspect]
     Active Substance: TOCILIZUMAB
     Indication: Rheumatoid arthritis
     Route: 058
  2. OXYCODONE [Concomitant]
     Active Substance: OXYCODONE
  3. OXYCODONE [Concomitant]
     Active Substance: OXYCODONE
  4. CHOLECALCIFEROL [Concomitant]
     Active Substance: CHOLECALCIFEROL
  5. IODINE [Concomitant]
     Active Substance: IODINE
     Dosage: 200 1.5  PER DAY
  6. CELECOXIB [Concomitant]
     Active Substance: CELECOXIB
     Dosage: 100
  7. PREDNISOLONE [Concomitant]
     Active Substance: PREDNISOLONE
  8. BISOPROLOL [Concomitant]
     Active Substance: BISOPROLOL
     Dosage: 2X1/4 /DAY

REACTIONS (1)
  - Supraventricular tachycardia [Unknown]

NARRATIVE: CASE EVENT DATE: 20220905
